FAERS Safety Report 16930672 (Version 1)
Quarter: 2019Q4

REPORT INFORMATION
  Report Type: Spontaneous
  Country: US (occurrence: US)
  Receive Date: 20191017
  Receipt Date: 20191017
  Transmission Date: 20200122
  Serious: Yes (Hospitalization)
  Sender: FDA-Public Use
  Company Number: US-JUBILANT CADISTA PHARMACEUTICALS-2019JUB00286

PATIENT
  Age: 66 Year
  Sex: Male
  Weight: 74.8 kg

DRUGS (12)
  1. PREDNISONE. [Suspect]
     Active Substance: PREDNISONE
     Dosage: 100 MG, 1X/DAY
     Route: 048
     Dates: start: 20181213, end: 20181221
  2. PREDNISONE. [Suspect]
     Active Substance: PREDNISONE
     Indication: ACUTE GRAFT VERSUS HOST DISEASE
     Dosage: 70 MG, 2X/DAY
     Route: 048
     Dates: start: 20181209, end: 20181210
  3. PREDNISONE. [Suspect]
     Active Substance: PREDNISONE
     Dosage: 100 MG, 1X/DAY
     Route: 048
     Dates: start: 20181228, end: 20190104
  4. PREDNISONE. [Suspect]
     Active Substance: PREDNISONE
     Dosage: 80 MG, 1X/DAY
     Route: 048
     Dates: start: 20190122, end: 20190219
  5. PREDNISONE. [Suspect]
     Active Substance: PREDNISONE
     Dosage: 60 MG, 2X/DAY
     Route: 048
     Dates: start: 20181210, end: 20181212
  6. TACROLIMUS. [Concomitant]
     Active Substance: TACROLIMUS
     Dosage: UNK
     Dates: start: 20190205, end: 20190218
  7. PREDNISONE. [Suspect]
     Active Substance: PREDNISONE
     Dosage: 80 MG, 1X/DAY
     Route: 048
     Dates: start: 20181221, end: 20181228
  8. PREDNISONE. [Suspect]
     Active Substance: PREDNISONE
     Dosage: 80 MG, 1X/DAY
     Route: 048
     Dates: start: 20190104, end: 20190115
  9. PREDNISONE. [Suspect]
     Active Substance: PREDNISONE
     Dosage: 60 MG, 1X/DAY
     Route: 048
     Dates: start: 20190219
  10. INCB039110 OR PLACEBO [Suspect]
     Active Substance: ITACITINIB
     Indication: ACUTE GRAFT VERSUS HOST DISEASE
     Dosage: 200 MG, 1X/DAY
     Route: 048
     Dates: start: 20181207
  11. METHYLPREDNISOLONE. [Suspect]
     Active Substance: METHYLPREDNISOLONE
     Indication: ACUTE GRAFT VERSUS HOST DISEASE
     Dosage: 70 MG, EVERY 12 HOURS
     Route: 042
     Dates: start: 20181206, end: 20181209
  12. PREDNISONE. [Suspect]
     Active Substance: PREDNISONE
     Dosage: 60 MG, 1X/DAY
     Route: 048
     Dates: start: 20190115, end: 20190122

REACTIONS (1)
  - Hyperglycaemia [Recovered/Resolved]

NARRATIVE: CASE EVENT DATE: 20190219
